FAERS Safety Report 11194386 (Version 1)
Quarter: 2015Q2

REPORT INFORMATION
  Report Type: Spontaneous
  Country: US (occurrence: US)
  Receive Date: 20150616
  Receipt Date: 20150616
  Transmission Date: 20150821
  Serious: No
  Sender: FDA-Public Use
  Company Number: US-GLAXOSMITHKLINE-US2015GSK080740

PATIENT
  Sex: Female

DRUGS (2)
  1. ROPINIROLE HYDROCHLORIDE TABLET [Suspect]
     Active Substance: ROPINIROLE HYDROCHLORIDE
     Indication: RESTLESS LEGS SYNDROME
     Dosage: 10 MG, QD
  2. ROPINIROLE HYDROCHLORIDE TABLET [Suspect]
     Active Substance: ROPINIROLE HYDROCHLORIDE
     Dosage: 15 MG, QD
     Route: 048
     Dates: start: 2015

REACTIONS (3)
  - Malaise [Unknown]
  - Exposure during pregnancy [Unknown]
  - Restless legs syndrome [Unknown]
